FAERS Safety Report 7984757-9 (Version None)
Quarter: 2011Q4

REPORT INFORMATION
  Report Type: 
  Country: None (occurrence: None)
  Receive Date: 20111216
  Receipt Date: 20111207
  Transmission Date: 20120403
  Serious: Yes (Hospitalization, Other)
  Sender: FDA-Public Use
  Company Number: US-US-EMD SERONO, INC.-7100740

PATIENT
  Sex: Female
  Weight: 73 kg

DRUGS (1)
  1. REBIF [Suspect]
     Indication: MULTIPLE SCLEROSIS
     Route: 058
     Dates: start: 20081124

REACTIONS (10)
  - INTERVERTEBRAL DISC SPACE NARROWING [None]
  - CONTUSION [None]
  - BACK PAIN [None]
  - NAUSEA [None]
  - INTESTINAL STENOSIS [None]
  - INFLUENZA LIKE ILLNESS [None]
  - DEPRESSION [None]
  - LOSS OF CONSCIOUSNESS [None]
  - CONCUSSION [None]
  - PAIN IN EXTREMITY [None]
